FAERS Safety Report 18348868 (Version 1)
Quarter: 2020Q4

REPORT INFORMATION
  Report Type: Spontaneous
  Country: US (occurrence: US)
  Receive Date: 20201005
  Receipt Date: 20201005
  Transmission Date: 20210114
  Serious: Yes (Hospitalization)
  Sender: FDA-Public Use
  Company Number: None

PATIENT
  Age: 69 Year
  Sex: Female

DRUGS (1)
  1. GLEEVEC [Suspect]
     Active Substance: IMATINIB MESYLATE
     Route: 048
     Dates: start: 2019

REACTIONS (4)
  - Pulmonary embolism [None]
  - Facial bones fracture [None]
  - Loss of consciousness [None]
  - Functional gastrointestinal disorder [None]

NARRATIVE: CASE EVENT DATE: 20200901
